FAERS Safety Report 5474515-1 (Version None)
Quarter: 2007Q3

REPORT INFORMATION
  Report Type: 
  Country: None (occurrence: None)
  Receive Date: 20070928
  Receipt Date: 20070928
  Transmission Date: 20080115
  Serious: Yes (Hospitalization)
  Sender: FDA-Public Use
  Company Number: None

PATIENT
  Sex: Male
  Weight: 81 kg

DRUGS (9)
  1. CYTARABINE [Suspect]
     Dosage: 32000 MG
  2. ETOPOSIDE [Suspect]
     Dosage: 3240 MG
  3. DAPSONE [Concomitant]
  4. GLUCOPHAGE [Concomitant]
  5. KLONOPIN [Concomitant]
  6. PAPCID [Concomitant]
  7. POTASSIUM CHLORIDE [Concomitant]
  8. RISPERDAL [Concomitant]
  9. ATIVAN [Concomitant]

REACTIONS (4)
  - DEHYDRATION [None]
  - DIARRHOEA [None]
  - MUCOSAL INFLAMMATION [None]
  - PANCYTOPENIA [None]
